FAERS Safety Report 12433910 (Version 2)
Quarter: 2016Q2

REPORT INFORMATION
  Report Type: Report from Study
  Country: US (occurrence: US)
  Receive Date: 20160603
  Receipt Date: 20160608
  Transmission Date: 20160815
  Serious: Yes (Hospitalization, Other)
  Sender: FDA-Public Use
  Company Number: US-BAYER-2015-485732

PATIENT
  Age: 52 Year
  Sex: Female
  Weight: 103.4 kg

DRUGS (5)
  1. ADEMPAS [Suspect]
     Active Substance: RIOCIGUAT
     Indication: PULMONARY ARTERIAL HYPERTENSION
     Dosage: 2.5 MG, THREE TIMES DAILY
     Route: 048
  2. ADEMPAS [Suspect]
     Active Substance: RIOCIGUAT
     Indication: PULMONARY ARTERIAL HYPERTENSION
     Dosage: 2.5 MG, THREE TIMES DAILY
     Route: 048
  3. ADEMPAS [Suspect]
     Active Substance: RIOCIGUAT
     Indication: PULMONARY ARTERIAL HYPERTENSION
     Dosage: UNK
     Dates: start: 20150624
  4. REMODULIN [Concomitant]
     Active Substance: TREPROSTINIL
     Dosage: UNK
  5. VELETRI [Concomitant]
     Active Substance: EPOPROSTENOL

REACTIONS (8)
  - Gallbladder disorder [Unknown]
  - Hospitalisation [None]
  - Cardiovascular disorder [None]
  - Drug ineffective [None]
  - Gallbladder disorder [Unknown]
  - Cardiac disorder [None]
  - Lung disorder [None]
  - Adverse drug reaction [None]

NARRATIVE: CASE EVENT DATE: 201511
